FAERS Safety Report 4847209-0 (Version None)
Quarter: 2005Q4

REPORT INFORMATION
  Report Type: 
  Country: None (occurrence: None)
  Receive Date: 20051205
  Receipt Date: 20051205
  Transmission Date: 20060501
  Serious: Yes (Disabling)
  Sender: FDA-Public Use
  Company Number: None

PATIENT
  Age: 49 Year
  Sex: Male
  Weight: 90 kg

DRUGS (1)
  1. PEGINTERFERON ALFA 2B   120MCG/0.5ML   SCHERING [Suspect]
     Indication: HEPATITIS C
     Dosage: 144 MCG   EVERY 7 DAYS   SQ
     Route: 058
     Dates: start: 20041001, end: 20050121

REACTIONS (1)
  - HYPOTHYROIDISM [None]
